FAERS Safety Report 19662331 (Version 14)
Quarter: 2024Q1

REPORT INFORMATION
  Report Type: Report from Study
  Country: DE (occurrence: DE)
  Receive Date: 20210805
  Receipt Date: 20240312
  Transmission Date: 20240410
  Serious: Yes (Hospitalization, Other)
  Sender: FDA-Public Use
  Company Number: NVSC2021DE172634

PATIENT
  Age: 52 Year
  Sex: Female
  Weight: 62 kg

DRUGS (31)
  1. PANTOPRAZOLE [Suspect]
     Active Substance: PANTOPRAZOLE
     Indication: Product used for unknown indication
     Dosage: 40 MG
     Route: 065
  2. CORTISONE [Suspect]
     Active Substance: CORTISONE
     Indication: Product used for unknown indication
     Dosage: UNK (ALTERNATIVE TO VOLON A)
     Route: 042
     Dates: end: 20200813
  3. OCRELIZUMAB [Suspect]
     Active Substance: OCRELIZUMAB
     Indication: Progressive relapsing multiple sclerosis
     Dosage: 600.000MG
     Route: 042
  4. OCRELIZUMAB [Suspect]
     Active Substance: OCRELIZUMAB
     Indication: Secondary progressive multiple sclerosis
     Dosage: 600.000MG
     Route: 042
  5. OCRELIZUMAB [Suspect]
     Active Substance: OCRELIZUMAB
     Indication: Relapsing-remitting multiple sclerosis
     Dosage: 600.000MG
     Route: 042
  6. IBUPROFEN [Concomitant]
     Active Substance: IBUPROFEN
     Indication: Product used for unknown indication
     Dosage: UNK, PRN
     Route: 065
  7. CHOLECALCIFEROL [Concomitant]
     Active Substance: CHOLECALCIFEROL
     Indication: Product used for unknown indication
     Dosage: 20000 IU, QW (1 PER WEEK EVERY THREE MONTHS)
     Route: 065
  8. TRIAMCINOLONE ACETONIDE [Concomitant]
     Active Substance: TRIAMCINOLONE ACETONIDE
     Indication: Product used for unknown indication
     Dosage: 100 MG, Q3MO (ADMINISTERD INTO THE LIQUOR CEREBROSPINALIS)
     Route: 037
     Dates: start: 20200409
  9. TRIAMCINOLONE ACETONIDE [Concomitant]
     Active Substance: TRIAMCINOLONE ACETONIDE
     Dosage: UNK (INTO SPINAL FLUID), Q3MO
     Route: 065
  10. NOVALGIN [Concomitant]
     Indication: Product used for unknown indication
     Dosage: UNK
     Route: 065
  11. ALBUTEROL [Concomitant]
     Active Substance: ALBUTEROL
     Indication: Product used for unknown indication
     Dosage: UNK, PRN
     Route: 065
  12. DOMPERIDONE [Concomitant]
     Active Substance: DOMPERIDONE
     Indication: Product used for unknown indication
     Dosage: UNK
     Route: 065
  13. CANNABIS SATIVA FLOWERING TOP [Concomitant]
     Active Substance: CANNABIS SATIVA FLOWERING TOP
     Indication: Product used for unknown indication
     Dosage: UNK (FLOWER) (SEVERAL TIMES PER DAY AND IN THE NIGHT)
     Route: 065
  14. OXYCODONE [Concomitant]
     Active Substance: OXYCODONE\OXYCODONE HYDROCHLORIDE
     Indication: Product used for unknown indication
     Dosage: 5 MG, PRN (UP TO 4 TABLETS DAILY)
     Route: 065
  15. NITROFURANTOIN [Concomitant]
     Active Substance: NITROFURANTOIN
     Indication: Product used for unknown indication
     Dosage: 100 MG
     Route: 065
  16. HEPARIN [Concomitant]
     Active Substance: HEPARIN SODIUM
     Indication: Product used for unknown indication
     Dosage: UNK
     Route: 065
     Dates: start: 20200618
  17. NABIXIMOLS [Concomitant]
     Active Substance: NABIXIMOLS
     Indication: Product used for unknown indication
     Dosage: UNK, PRN
     Route: 065
  18. ESTRIOL [Concomitant]
     Active Substance: ESTRIOL
     Indication: Product used for unknown indication
     Dosage: 1 MG, QW (CURRENTLY PAUSED)
     Route: 065
  19. FOLIC ACID [Concomitant]
     Active Substance: FOLIC ACID
     Indication: Product used for unknown indication
     Dosage: UNK
     Route: 065
  20. XIPAMIDE [Concomitant]
     Active Substance: XIPAMIDE
     Indication: Product used for unknown indication
     Dosage: 10 MG
     Route: 065
  21. SULFAMETHOXAZOLE\TRIMETHOPRIM [Concomitant]
     Active Substance: SULFAMETHOXAZOLE\TRIMETHOPRIM
     Indication: Product used for unknown indication
     Dosage: UNK
     Route: 065
  22. D-MANNOSE [Concomitant]
     Indication: Product used for unknown indication
     Dosage: UNK
     Route: 065
  23. CANNABIS SATIVA SUBSP. INDICA TOP [Concomitant]
     Active Substance: CANNABIS SATIVA SUBSP. INDICA TOP
     Indication: Product used for unknown indication
     Dosage: UNK (SEVERAL TIMES PER DAY AND IN THE NIGHTCANNABIS BLOSSOMS 3-5X DAILY AND AT NIGHT)
     Route: 065
  24. FORMOTEROL FUMARATE [Concomitant]
     Active Substance: FORMOTEROL FUMARATE
     Indication: Product used for unknown indication
     Dosage: 12 UG
     Route: 065
  25. RAMIPRIL [Concomitant]
     Active Substance: RAMIPRIL
     Indication: Product used for unknown indication
     Dosage: 1.25 MG
     Route: 065
  26. RAMIPRIL [Concomitant]
     Active Substance: RAMIPRIL
     Dosage: 2.5 MG, PRN
     Route: 065
  27. RAMIPRIL [Concomitant]
     Active Substance: RAMIPRIL
     Dosage: 2.5 MG, QD (IN THE EVENING)
     Route: 065
  28. RAMIPRIL [Concomitant]
     Active Substance: RAMIPRIL
     Dosage: 2.5 MG (1-0-1)
     Route: 065
     Dates: start: 20190701
  29. COTRIMOXAZOLE [Concomitant]
     Active Substance: SULFAMETHOXAZOLE\TRIMETHOPRIM
     Indication: Product used for unknown indication
     Dosage: UNK
     Route: 065
  30. LACTIC ACID, DL-\SODIUM LACTATE [Concomitant]
     Active Substance: LACTIC ACID, DL-\SODIUM LACTATE
     Indication: Product used for unknown indication
     Dosage: UNK
     Route: 065
  31. FOLIC ACID [Concomitant]
     Active Substance: FOLIC ACID
     Indication: Product used for unknown indication
     Dosage: 5 MG, QD
     Route: 065

REACTIONS (131)
  - Gastritis erosive [Recovered/Resolved]
  - Uterine enlargement [Not Recovered/Not Resolved]
  - Cystitis [Not Recovered/Not Resolved]
  - Cataract [Not Recovered/Not Resolved]
  - Cataract [Not Recovered/Not Resolved]
  - Cardiac failure [Not Recovered/Not Resolved]
  - Fracture [Recovered/Resolved]
  - Urogenital fistula [Recovered/Resolved]
  - Cushing^s syndrome [Not Recovered/Not Resolved]
  - Multiple sclerosis relapse [Recovered/Resolved]
  - Urinary tract infection bacterial [Recovered/Resolved]
  - Periorbital swelling [Not Recovered/Not Resolved]
  - Calcinosis [Recovered/Resolved]
  - Seborrhoeic keratosis [Unknown]
  - Migraine [Unknown]
  - Body fat disorder [Not Recovered/Not Resolved]
  - Bone density increased [Not Recovered/Not Resolved]
  - B-lymphocyte count decreased [Not Recovered/Not Resolved]
  - Bone pain [Recovered/Resolved]
  - Osteoporosis [Not Recovered/Not Resolved]
  - Alopecia [Recovered/Resolved]
  - Chronic gastritis [Not Recovered/Not Resolved]
  - Dry skin [Not Recovered/Not Resolved]
  - Dry skin [Not Recovered/Not Resolved]
  - Uterine enlargement [Recovered/Resolved]
  - Gamma-glutamyltransferase increased [Recovered/Resolved]
  - Blood pressure increased [Recovered/Resolved]
  - Platelet count decreased [Recovered/Resolved]
  - Urine odour abnormal [Recovering/Resolving]
  - Platelet count increased [Not Recovered/Not Resolved]
  - Cushing^s syndrome [Not Recovered/Not Resolved]
  - Wound [Recovered/Resolved]
  - Tooth fracture [Recovered/Resolved]
  - Platelet count increased [Recovered/Resolved]
  - Blood cholesterol increased [Recovered/Resolved]
  - Pain [Recovered/Resolved]
  - Dyspepsia [Recovered/Resolved]
  - Chills [Recovered/Resolved]
  - Oedema [Recovered/Resolved]
  - Periorbital swelling [Recovered/Resolved]
  - Depression [Recovered/Resolved]
  - Fatigue [Recovered/Resolved]
  - Inappropriate affect [Recovered/Resolved]
  - Abdominal distension [Recovered/Resolved]
  - Erythema [Recovered/Resolved]
  - Influenza like illness [Recovered/Resolved]
  - Constipation [Recovered/Resolved]
  - Alopecia [Recovered/Resolved]
  - Pain [Recovered/Resolved]
  - Throat irritation [Recovered/Resolved]
  - Skin induration [Recovered/Resolved]
  - Fall [Unknown]
  - Irritability [Not Recovered/Not Resolved]
  - Feeling hot [Recovered/Resolved]
  - Blood pressure increased [Recovering/Resolving]
  - Oral discomfort [Recovered/Resolved]
  - Dry skin [Recovered/Resolved]
  - Listless [Recovered/Resolved]
  - Back pain [Not Recovered/Not Resolved]
  - Emotional distress [Recovered/Resolved]
  - Depressed mood [Recovered/Resolved]
  - Low density lipoprotein increased [Not Recovered/Not Resolved]
  - Meningism [Recovered/Resolved]
  - Anal incontinence [Recovered/Resolved]
  - Sinus disorder [Recovered/Resolved]
  - Sensation of foreign body [Recovered/Resolved]
  - Anal incontinence [Not Recovered/Not Resolved]
  - Bone pain [Not Recovered/Not Resolved]
  - Initial insomnia [Not Recovered/Not Resolved]
  - Ligament sprain [Recovered/Resolved]
  - Illness [Recovered/Resolved]
  - Dysstasia [Not Recovered/Not Resolved]
  - Back pain [Not Recovered/Not Resolved]
  - Oral herpes [Recovered/Resolved]
  - Anal inflammation [Recovered/Resolved]
  - Seborrhoeic keratosis [Not Recovered/Not Resolved]
  - Blood cholesterol increased [Not Recovered/Not Resolved]
  - Nasopharyngitis [Recovered/Resolved]
  - Folate deficiency [Recovered/Resolved]
  - Urinary tract infection [Recovered/Resolved]
  - Oral herpes [Recovered/Resolved]
  - Intestinal atony [Unknown]
  - Lymphocyte count decreased [Recovered/Resolved]
  - B-lymphocyte count abnormal [Recovered/Resolved]
  - Uterine enlargement [Recovered/Resolved]
  - Intestinal atony [Unknown]
  - Gamma-glutamyltransferase increased [Recovered/Resolved]
  - Folate deficiency [Recovered/Resolved]
  - Chills [Unknown]
  - Paraesthesia [Not Recovered/Not Resolved]
  - Paraesthesia [Not Recovered/Not Resolved]
  - Faeces soft [Recovered/Resolved]
  - Throat tightness [Recovered/Resolved]
  - Abdominal distension [Not Recovered/Not Resolved]
  - Asthenia [Not Recovered/Not Resolved]
  - Muscular weakness [Not Recovered/Not Resolved]
  - Pyrexia [Unknown]
  - Alopecia [Not Recovered/Not Resolved]
  - Muscle spasticity [Recovered/Resolved]
  - Muscle spasticity [Not Recovered/Not Resolved]
  - Cataract [Not Recovered/Not Resolved]
  - Eyelid ptosis [Recovered/Resolved]
  - Vision blurred [Not Recovered/Not Resolved]
  - Muscular weakness [Recovered/Resolved]
  - Muscular weakness [Recovering/Resolving]
  - SARS-CoV-2 antibody test negative [Not Recovered/Not Resolved]
  - Endometrial thickening [Recovering/Resolving]
  - Mobility decreased [Recovered/Resolved]
  - Pain in extremity [Recovered/Resolved]
  - Gait disturbance [Not Recovered/Not Resolved]
  - Vulvovaginal dryness [Unknown]
  - Cystitis noninfective [Recovered/Resolved]
  - Cystitis noninfective [Not Recovered/Not Resolved]
  - Rash [Recovered/Resolved]
  - Throat irritation [Recovered/Resolved]
  - Dizziness [Recovered/Resolved]
  - Vitamin D decreased [Recovered/Resolved]
  - Insomnia [Recovered/Resolved]
  - Insomnia [Not Recovered/Not Resolved]
  - Initial insomnia [Recovered/Resolved]
  - Weight increased [Recovered/Resolved]
  - Weight increased [Not Recovered/Not Resolved]
  - Weight increased [Not Recovered/Not Resolved]
  - Asthenia [Recovered/Resolved]
  - Asthenia [Not Recovered/Not Resolved]
  - Fluid retention [Recovered/Resolved]
  - Paraesthesia [Recovered/Resolved]
  - Diarrhoea [Recovered/Resolved]
  - Arthralgia [Recovered/Resolved]
  - Injection site warmth [Recovered/Resolved]
  - Injection site erythema [Recovered/Resolved]

NARRATIVE: CASE EVENT DATE: 20180523
